FAERS Safety Report 8903569 (Version 1)
Quarter: 2012Q4

REPORT INFORMATION
  Report Type: 
  Country: JP (occurrence: JP)
  Receive Date: 20121113
  Receipt Date: 20121113
  Transmission Date: 20130627
  Serious: Yes (Hospitalization)
  Sender: FDA-Public Use
  Company Number: JP-ACTELION-A-CH2012-74041

PATIENT
  Age: 4 Year
  Sex: Female

DRUGS (4)
  1. TRACLEER [Suspect]
     Indication: PULMONARY HYPERTENSION
     Route: 048
  2. FUROSEMIDE [Suspect]
     Indication: CARDIAC FAILURE
     Dosage: UNK
     Dates: start: 20081213
  3. SILDENAFIL CITRATE [Concomitant]
     Route: 048
  4. SPIRONOLACTONE [Concomitant]

REACTIONS (1)
  - Hypokalaemia [Recovered/Resolved]
